FAERS Safety Report 7681766-4 (Version None)
Quarter: 2011Q3

REPORT INFORMATION
  Report Type: 
  Country: None (occurrence: None)
  Receive Date: 20110812
  Receipt Date: 20110803
  Transmission Date: 20111222
  Serious: Yes (Hospitalization)
  Sender: FDA-Public Use
  Company Number: US-ASTRAZENECA-2011SE46299

PATIENT
  Age: 64 Year
  Sex: Female
  Weight: 71.2 kg

DRUGS (8)
  1. KLONOPIN [Concomitant]
  2. VENTALIN [Concomitant]
  3. TYLENOL W/ CODEINE NO. 4 [Concomitant]
  4. SOMA [Concomitant]
  5. SEROQUEL [Suspect]
     Route: 048
     Dates: start: 20110701
  6. CELEXA [Concomitant]
  7. SEROQUEL [Suspect]
     Route: 048
  8. PERCOCET [Concomitant]

REACTIONS (6)
  - HANGOVER [None]
  - LUNG NEOPLASM MALIGNANT [None]
  - PAIN [None]
  - LUNG OPERATION [None]
  - WEIGHT DECREASED [None]
  - DRUG DOSE OMISSION [None]
